FAERS Safety Report 17526180 (Version 1)
Quarter: 2020Q1

REPORT INFORMATION
  Report Type: Spontaneous
  Country: US (occurrence: US)
  Receive Date: 20200303
  Receipt Date: 20200303
  Transmission Date: 20200409
  Serious: Yes (Other)
  Sender: FDA-Public Use
  Company Number: None

PATIENT
  Sex: Male
  Weight: 95.25 kg

DRUGS (1)
  1. BENZONATATE. [Suspect]
     Active Substance: BENZONATATE
     Indication: COUGH
     Dosage: ?          QUANTITY:1 PILL;OTHER FREQUENCY:3 X D AS NEEDED;?
     Route: 048
     Dates: start: 20200218, end: 20200218

REACTIONS (2)
  - Dysphagia [None]
  - Dyspnoea [None]
